FAERS Safety Report 14574390 (Version 2)
Quarter: 2018Q3

REPORT INFORMATION
  Report Type: Report from Study
  Country: None (occurrence: US)
  Receive Date: 20180226
  Receipt Date: 20180731
  Transmission Date: 20181010
  Serious: Yes (Hospitalization)
  Sender: FDA-Public Use
  Company Number: US-ABBVIE-17K-163-2169834-00

PATIENT
  Age: 76 Year
  Sex: Female
  Weight: 79 kg

DRUGS (3)
  1. ATENOLOL. [Concomitant]
     Active Substance: ATENOLOL
     Indication: BLOOD PRESSURE MEASUREMENT
  2. ELMIRON [Concomitant]
     Active Substance: PENTOSAN POLYSULFATE SODIUM
     Indication: CYSTITIS INTERSTITIAL
  3. HUMIRA [Suspect]
     Active Substance: ADALIMUMAB
     Indication: CROHN^S DISEASE
     Route: 058

REACTIONS (10)
  - Balance disorder [Unknown]
  - Diplopia [Unknown]
  - Hypoaesthesia [Unknown]
  - Upper limb fracture [Recovering/Resolving]
  - Fall [Recovered/Resolved]
  - Femur fracture [Recovering/Resolving]
  - Multiple fractures [Unknown]
  - Paraesthesia [Unknown]
  - Fall [Unknown]
  - Heart rate increased [Unknown]

NARRATIVE: CASE EVENT DATE: 20171102
